FAERS Safety Report 5523228-6 (Version None)
Quarter: 2007Q4

REPORT INFORMATION
  Report Type: 
  Country: None (occurrence: None)
  Receive Date: 20071116
  Receipt Date: 20071116
  Transmission Date: 20080405
  Serious: Yes (Hospitalization)
  Sender: FDA-Public Use
  Company Number: None

PATIENT
  Sex: Female
  Weight: 86 kg

DRUGS (13)
  1. METHOTREXATE [Suspect]
     Dosage: 7 G
  2. DEXAMETHASONE TAB [Suspect]
     Dosage: 36 MG
  3. LEUCOVORIN CALCIUM [Suspect]
     Dosage: 275 MG
  4. ARIXTRA [Concomitant]
  5. COUMADIN [Concomitant]
  6. KLONOPIN [Concomitant]
  7. METFORMIN HCL [Concomitant]
  8. MYCELEX [Concomitant]
  9. PERIDEX MOUTHWASH [Concomitant]
  10. PROTONIX [Concomitant]
  11. TOBRADEX [Concomitant]
  12. XANAX [Concomitant]
  13. ZOLOFT [Concomitant]

REACTIONS (3)
  - COUGH [None]
  - LIVER FUNCTION TEST ABNORMAL [None]
  - RASH MACULAR [None]
